FAERS Safety Report 8076872-9 (Version None)
Quarter: 2012Q1

REPORT INFORMATION
  Report Type: 
  Country: None (occurrence: None)
  Receive Date: 20120127
  Receipt Date: 20120120
  Transmission Date: 20120608
  Serious: Yes (Hospitalization)
  Sender: FDA-Public Use
  Company Number: FR-MERCK-1201USA03229

PATIENT
  Age: 62 Year
  Sex: Female

DRUGS (12)
  1. ZOLPIDEM [Concomitant]
     Route: 065
  2. CANCIDAS [Suspect]
     Indication: FUNGAEMIA
     Route: 042
     Dates: start: 20110509, end: 20110620
  3. VANCOMYCIN [Suspect]
     Route: 048
     Dates: start: 20110817
  4. ALLOPURINOL [Concomitant]
     Route: 065
  5. VANCOMYCIN [Suspect]
     Indication: CLOSTRIDIUM DIFFICILE COLITIS
     Route: 048
     Dates: start: 20110715, end: 20110729
  6. FLAGYL [Suspect]
     Indication: CLOSTRIDIUM DIFFICILE COLITIS
     Route: 042
     Dates: start: 20110713, end: 20110715
  7. VANCOMYCIN [Suspect]
     Route: 048
     Dates: start: 20110809, end: 20110812
  8. TIORFAN [Concomitant]
     Route: 065
  9. PRIMAXIN [Suspect]
     Indication: FUNGAEMIA
     Route: 065
     Dates: start: 20110525, end: 20110620
  10. LEVOTHYROXINE SODIUM [Concomitant]
     Route: 065
  11. ESCITALOPRAM OXALATE [Concomitant]
     Route: 065
  12. COLCHIMAX (COLCHICINE (+) OPIUM, POWDERED (+) TIEMONIUM METHYLSULFATE) [Concomitant]
     Route: 065

REACTIONS (1)
  - TOXIC SKIN ERUPTION [None]
